FAERS Safety Report 7434206-4 (Version None)
Quarter: 2011Q2

REPORT INFORMATION
  Report Type: 
  Country: None (occurrence: None)
  Receive Date: 20110425
  Receipt Date: 20110401
  Transmission Date: 20111010
  Serious: Yes (Hospitalization, Other)
  Sender: FDA-Public Use
  Company Number: US-BAYER-200921543NA

PATIENT
  Age: 2 Week
  Sex: Male
  Weight: 2.5 kg

DRUGS (29)
  1. LASIX [Concomitant]
     Dosage: UNK
     Route: 042
     Dates: start: 20011201
  2. FENTANYL [Concomitant]
     Dosage: UNK
     Route: 042
     Dates: start: 20011201
  3. CEFTAZIDIME [Concomitant]
     Dosage: 110 MG, TID
     Route: 042
     Dates: start: 20011201
  4. PROTAMINE SULFATE [Concomitant]
     Dosage: 10 MG, UNK
     Route: 042
  5. RED BLOOD CELLS [Concomitant]
     Indication: PRODUCT USED FOR UNKNOWN INDICATION
     Dosage: 50 ML
     Dates: start: 20011221
  6. CEFOTAX [Concomitant]
     Dosage: UNK
     Route: 042
     Dates: start: 20011201
  7. ATROPINE [Concomitant]
     Dosage: 0.1 MG, UNK
     Route: 042
     Dates: start: 20011201
  8. DOPAMINE [Concomitant]
     Dosage: UNK
     Route: 042
     Dates: start: 20011231
  9. TRASYLOL [Suspect]
     Indication: VENTRICULAR SEPTAL DEFECT
     Dosage: UNK
     Dates: start: 20070705
  10. VERSED [Concomitant]
     Dosage: 0.2 MG, UNK
     Route: 042
     Dates: start: 20011201
  11. GELFOAM [Concomitant]
     Dosage: UNK
     Route: 061
     Dates: start: 20011231, end: 20011231
  12. PHENOBARBITAL [Concomitant]
     Indication: CONVULSION
  13. ANCEF [Concomitant]
     Dosage: UNK
     Route: 042
     Dates: start: 20011231
  14. VANCOMYCIN [Concomitant]
     Dosage: UNK
     Route: 042
     Dates: start: 20011201
  15. VERSED [Concomitant]
     Dosage: 1 MG, UNK
     Route: 042
     Dates: start: 20011231
  16. ANCEF [Concomitant]
     Dosage: 110 MG, UNK
     Route: 042
     Dates: start: 20011231
  17. HEPARIN [Concomitant]
     Dosage: UNK
     Route: 042
     Dates: start: 20011231
  18. PLATELETS [Concomitant]
     Indication: CARDIAC OPERATION
     Dosage: 50 ML
     Dates: start: 20011231
  19. CHLORAL HYDRATE [Concomitant]
     Dosage: UNK
     Route: 042
     Dates: start: 20011201
  20. RED BLOOD CELLS [Concomitant]
     Indication: CARDIAC OPERATION
     Dosage: 20 ML
     Dates: start: 20011231
  21. TPN [Concomitant]
     Dosage: UNK
     Route: 051
     Dates: start: 20011201
  22. DIGOXIN [Concomitant]
     Dosage: UNK
     Route: 042
     Dates: start: 20011201
  23. VITAMIN K TAB [Concomitant]
     Dosage: UNK
     Route: 030
     Dates: start: 20011201
  24. AMPICILLIN [Concomitant]
     Dosage: UNK
     Route: 042
     Dates: start: 20011201
  25. CLAFORAN [Concomitant]
     Dosage: UNK
     Route: 042
     Dates: start: 20011201
  26. AMINOPHYLLINE [Concomitant]
     Dosage: 13.5 MG, UNK
     Route: 042
     Dates: start: 20011201
  27. TRASYLOL [Suspect]
     Indication: TRUNCUS ARTERIOSUS PERSISTENT
     Dosage: 2 OR 3 CC
     Route: 042
     Dates: start: 20011231
  28. SOLU-MEDROL [Concomitant]
     Dosage: UNK
     Dates: start: 20011231
  29. MILRINONE [Concomitant]
     Dosage: UNK
     Route: 042
     Dates: start: 20011231

REACTIONS (11)
  - STRESS [None]
  - NERVOUS SYSTEM DISORDER [None]
  - RENAL IMPAIRMENT [None]
  - FEAR [None]
  - MULTI-ORGAN FAILURE [None]
  - CEREBROVASCULAR ACCIDENT [None]
  - UNEVALUABLE EVENT [None]
  - ANXIETY [None]
  - PAIN [None]
  - EMOTIONAL DISTRESS [None]
  - CONVULSION [None]
